FAERS Safety Report 23261350 (Version 1)
Quarter: 2023Q4

REPORT INFORMATION
  Report Type: Spontaneous
  Country: US (occurrence: US)
  Receive Date: 20231205
  Receipt Date: 20231205
  Transmission Date: 20240110
  Serious: Yes (Other)
  Sender: FDA-Public Use
  Company Number: US-GLAXOSMITHKLINE-US2023166302

PATIENT
  Sex: Female

DRUGS (3)
  1. LAMICTAL [Suspect]
     Active Substance: LAMOTRIGINE
     Indication: Seizure
     Dosage: 200 MG, BID
  2. DILANTIN [Concomitant]
     Active Substance: PHENYTOIN
     Indication: Seizure
     Dosage: UNK
  3. PROZAC [Concomitant]
     Active Substance: FLUOXETINE HYDROCHLORIDE
     Indication: Seizure
     Dosage: UNK

REACTIONS (1)
  - Seizure [Not Recovered/Not Resolved]
